FAERS Safety Report 16610155 (Version 1)
Quarter: 2019Q3

REPORT INFORMATION
  Report Type: Spontaneous
  Country: NO (occurrence: NO)
  Receive Date: 20190722
  Receipt Date: 20190722
  Transmission Date: 20191004
  Serious: Yes (Life-Threatening)
  Sender: FDA-Public Use
  Company Number: NO-NOVOPROD-673467

PATIENT
  Age: 23 Year
  Sex: Male

DRUGS (1)
  1. NOVORAPID [Suspect]
     Active Substance: INSULIN ASPART
     Indication: TYPE 1 DIABETES MELLITUS
     Dosage: INSULIN PUMP
     Route: 058

REACTIONS (4)
  - Diabetic ketoacidosis [Recovered/Resolved]
  - Incorrect dose administered [Unknown]
  - Product physical issue [Unknown]
  - Product leakage [Unknown]

NARRATIVE: CASE EVENT DATE: 20190628
